FAERS Safety Report 5964343-2 (Version None)
Quarter: 2008Q4

REPORT INFORMATION
  Report Type: 
  Country: None (occurrence: None)
  Receive Date: 20081124
  Receipt Date: 20081119
  Transmission Date: 20090506
  Serious: Yes (Other)
  Sender: FDA-Public Use
  Company Number: US-PFIZER INC-2008098355

PATIENT
  Sex: Female
  Weight: 29.5 kg

DRUGS (10)
  1. GEODON [Suspect]
     Indication: BIPOLAR DISORDER
     Dates: start: 20081106, end: 20081119
  2. KLONOPIN [Interacting]
  3. PREVACID [Concomitant]
  4. HYOSCYAMINE [Concomitant]
  5. WELLBUTRIN [Concomitant]
  6. TOPAMAX [Concomitant]
  7. ALLEGRA [Concomitant]
  8. BETASERON [Concomitant]
  9. ALL OTHER THERAPEUTIC PRODUCTS [Concomitant]
  10. TEGRETOL [Concomitant]
     Dates: end: 20080101

REACTIONS (20)
  - ADVERSE REACTION [None]
  - ASTHMA [None]
  - BODY TEMPERATURE DECREASED [None]
  - CHILLS [None]
  - CONVULSION [None]
  - COUGH [None]
  - DECREASED APPETITE [None]
  - DRUG INTERACTION [None]
  - EYE DISORDER [None]
  - FACE OEDEMA [None]
  - FEAR [None]
  - FEELING ABNORMAL [None]
  - FLUSHING [None]
  - LOSS OF CONSCIOUSNESS [None]
  - NASAL CONGESTION [None]
  - NYSTAGMUS [None]
  - PERIPHERAL COLDNESS [None]
  - PYREXIA [None]
  - RHINORRHOEA [None]
  - WEIGHT INCREASED [None]
